FAERS Safety Report 20049636 (Version 1)
Quarter: 2021Q4

REPORT INFORMATION
  Report Type: Other
  Country: US (occurrence: None)
  Receive Date: 20211109
  Receipt Date: 20211109
  Transmission Date: 20220303
  Serious: Yes (Hospitalization)
  Sender: FDA-Public Use
  Company Number: US-Invatech-000156

PATIENT
  Age: 68 Year
  Sex: Male

DRUGS (5)
  1. VALPROIC ACID [Suspect]
     Active Substance: VALPROIC ACID
     Indication: Dementia Alzheimer^s type
     Dosage: 500 MG/D
  2. BENZTROPINE [Concomitant]
     Active Substance: BENZTROPINE
     Indication: Dementia Alzheimer^s type
  3. QUETIAPINE [Concomitant]
     Active Substance: QUETIAPINE
     Indication: Dementia Alzheimer^s type
  4. MEMANTINE [Concomitant]
     Active Substance: MEMANTINE
     Indication: Dementia Alzheimer^s type
  5. MIRTAZAPINE [Concomitant]
     Active Substance: MIRTAZAPINE
     Indication: Dementia Alzheimer^s type

REACTIONS (1)
  - Eosinophilic pleural effusion [Recovered/Resolved]
